FAERS Safety Report 17724307 (Version 3)
Quarter: 2020Q3

REPORT INFORMATION
  Report Type: Spontaneous
  Country: US (occurrence: US)
  Receive Date: 20200429
  Receipt Date: 20200724
  Transmission Date: 20201102
  Serious: Yes (Death, Other)
  Sender: FDA-Public Use
  Company Number: US-NAPPMUNDI-USA-2020-0151619

PATIENT
  Age: 74 Year
  Sex: Male

DRUGS (2)
  1. DILAUDID [Suspect]
     Active Substance: HYDROMORPHONE HYDROCHLORIDE
     Dosage: 2 MG, SINGLE
     Route: 042
     Dates: start: 20120518
  2. DILAUDID [Suspect]
     Active Substance: HYDROMORPHONE HYDROCHLORIDE
     Indication: GALLBLADDER DISORDER
     Dosage: 2 MG, SINGLE
     Route: 042
     Dates: start: 20120518

REACTIONS (6)
  - Dyspnoea [Unknown]
  - Death [Fatal]
  - Pallor [Unknown]
  - Incorrect route of product administration [Unknown]
  - Unresponsive to stimuli [Recovered/Resolved]
  - Overdose [Unknown]

NARRATIVE: CASE EVENT DATE: 20120518
